FAERS Safety Report 7734218-7 (Version None)
Quarter: 2011Q3

REPORT INFORMATION
  Report Type: 
  Country: None (occurrence: None)
  Receive Date: 20110817
  Receipt Date: 20100714
  Transmission Date: 20111222
  Serious: Yes (Other)
  Sender: FDA-Public Use
  Company Number: 20108365

PATIENT
  Age: 21 Year
  Sex: Male

DRUGS (1)
  1. LIORESAL [Suspect]
     Indication: MUSCLE SPASTICITY
     Dosage: MCG, DAILY, INTRATHECAL
     Route: 039

REACTIONS (8)
  - MUSCLE SPASTICITY [None]
  - PAIN [None]
  - CONDITION AGGRAVATED [None]
  - HYPERTONIA [None]
  - THERAPY CESSATION [None]
  - MUSCLE TIGHTNESS [None]
  - HYPERHIDROSIS [None]
  - TACHYCARDIA [None]
